FAERS Safety Report 10160988 (Version 2)
Quarter: 2014Q2

REPORT INFORMATION
  Report Type: Spontaneous
  Country: US (occurrence: US)
  Receive Date: 20140508
  Receipt Date: 20140610
  Transmission Date: 20141212
  Serious: No
  Sender: FDA-Public Use
  Company Number: US-LUNDBECK-DKLU1099376

PATIENT
  Sex: Male

DRUGS (6)
  1. SABRIL     (TABLET) [Suspect]
     Indication: SIMPLE PARTIAL SEIZURES
     Dates: start: 20140317
  2. SABRIL     (TABLET) [Suspect]
     Indication: EPILEPSY
  3. SABRIL     (TABLET) [Suspect]
     Indication: TUBEROUS SCLEROSIS
  4. DILANTIN [Concomitant]
     Indication: PRODUCT USED FOR UNKNOWN INDICATION
  5. DEPAKOTE [Concomitant]
     Indication: PRODUCT USED FOR UNKNOWN INDICATION
  6. DEPAKENE [Concomitant]
     Indication: PRODUCT USED FOR UNKNOWN INDICATION
     Dosage: 4 TSP

REACTIONS (4)
  - Crying [Recovered/Resolved]
  - Somnolence [Recovered/Resolved]
  - Agitation [Recovered/Resolved]
  - Drug ineffective [Unknown]
